FAERS Safety Report 8096440-2 (Version None)
Quarter: 2012Q1

REPORT INFORMATION
  Report Type: 
  Country: None (occurrence: None)
  Receive Date: 20120129
  Receipt Date: 20111228
  Transmission Date: 20120608
  Serious: No
  Sender: FDA-Public Use
  Company Number: US-ABBOTT-11P-163-0882953-00

PATIENT
  Age: 54 Year
  Sex: Female

DRUGS (8)
  1. DONNATAL [Concomitant]
     Indication: CROHN'S DISEASE
     Dosage: EXTEND BID
  2. PROBIOTICS [Concomitant]
     Indication: PRODUCT USED FOR UNKNOWN INDICATION
  3. HYOSCYAMINE [Concomitant]
     Indication: PAIN
  4. HUMIRA [Suspect]
     Indication: CROHN'S DISEASE
     Dates: start: 20111017
  5. TOVIAZ [Concomitant]
     Indication: BLADDER DISORDER
     Dosage: ER DAILY
  6. PREDNISONE TAB [Concomitant]
     Indication: PRODUCT USED FOR UNKNOWN INDICATION
  7. DEXILANT [Concomitant]
     Indication: OESOPHAGEAL DISORDER
     Dosage: DAILY
  8. DIPENTUM [Concomitant]
     Indication: PRODUCT USED FOR UNKNOWN INDICATION

REACTIONS (2)
  - ROTATOR CUFF SYNDROME [None]
  - MUSCULOSKELETAL PAIN [None]
